FAERS Safety Report 4418294-5 (Version None)
Quarter: 2004Q3

REPORT INFORMATION
  Report Type: 
  Country: None (occurrence: None)
  Receive Date: 20040809
  Receipt Date: 20040127
  Transmission Date: 20050211
  Serious: No
  Sender: FDA-Public Use
  Company Number: US-GLAXOSMITHKLINE-A0496273A

PATIENT
  Sex: Male

DRUGS (2)
  1. PAXIL [Suspect]
     Indication: DEPRESSION
     Dosage: 37.5MG PER DAY
     Route: 048
     Dates: start: 20031201
  2. UNSPECIFIED MEDICATION [Concomitant]
     Indication: ILL-DEFINED DISORDER

REACTIONS (2)
  - HEADACHE [None]
  - NAUSEA [None]
